FAERS Safety Report 17504598 (Version 1)
Quarter: 2020Q1

REPORT INFORMATION
  Report Type: Spontaneous
  Country: US (occurrence: US)
  Receive Date: 20200305
  Receipt Date: 20200305
  Transmission Date: 20200409
  Serious: No
  Sender: FDA-Public Use
  Company Number: US-SA-2020SA054143

PATIENT
  Age: 50 Year
  Sex: Female

DRUGS (7)
  1. PIMECROLIMUS. [Concomitant]
     Active Substance: PIMECROLIMUS
  2. PROBIOTICS NOS [Concomitant]
     Active Substance: PROBIOTICS NOS
  3. DUPIXENT [Suspect]
     Active Substance: DUPILUMAB
     Dosage: 300 MG, QOW
     Route: 058
     Dates: start: 20191011
  4. CLOBETASOL [Concomitant]
     Active Substance: CLOBETASOL
  5. TYLENOL [Concomitant]
     Active Substance: ACETAMINOPHEN
  6. FERROUS [IRON] [Concomitant]
     Active Substance: IRON
  7. MUPIROCIN. [Concomitant]
     Active Substance: MUPIROCIN

REACTIONS (2)
  - Rash [Not Recovered/Not Resolved]
  - Condition aggravated [Not Recovered/Not Resolved]
